FAERS Safety Report 9555473 (Version 1)
Quarter: 2013Q3

REPORT INFORMATION
  Report Type: Spontaneous
  Country: US (occurrence: None)
  Receive Date: 20130906
  Receipt Date: 20130906
  Transmission Date: 20140515
  Serious: Yes (Other)
  Sender: FDA-Public Use
  Company Number: 163-POMAL-13081488

PATIENT
  Age: 60 Year
  Sex: Male
  Weight: 70.3 kg

DRUGS (17)
  1. POMALYST [Suspect]
     Indication: PLASMA CELL MYELOMA
     Dosage: 4 MG, 1 IN 1 D, PO
     Route: 048
     Dates: start: 201306
  2. CYMBALTA (DULOXETINE HYDROCHLORIDE) (UNKNOWN)? [Concomitant]
  3. PANTOPRAZOLE SODIUM (PANTOPRAZOLE SODIUM) (SUSTAINED-RELEASE TABLET) [Concomitant]
  4. DEXAMETHASONE (DEXAMETHASONE) (TABLETS) [Concomitant]
  5. LORAZEPAM (LORAZEPAM) (TABLETS) [Concomitant]
  6. FENTANYL (FENTANYL) (POULTICE OR PATCH) [Concomitant]
  7. ACYCLOVIR (ACICLOVIR) (TABLETS) [Concomitant]
  8. ZOFRAN (ONDANSETRON HYDROCHLORIDE) (TABLETS) [Concomitant]
  9. VITAMIN D (ERGOCALCIFEROL) [Concomitant]
  10. TRAZODONE (TRAZODONE) (TABLETS) [Concomitant]
  11. ASPIRIN (ACETYLSALICYLIC ACID) (TABLETS)? [Concomitant]
  12. CALCIUM (CALCIUM) (TABLETS) [Concomitant]
  13. MIRALAX (MACROGOL) (POWDER) [Concomitant]
  14. FISH OIL (FISH OIL) [Concomitant]
  15. MORPHINE SULFATE (MORPHINE SULFATE) (SUSTAINED-RELEASE TABLET) [Concomitant]
  16. HALDOL (HALOPERIDOL) [Concomitant]
  17. B COMPLEX (BECOSYM FORTE) (CAPSULES) [Concomitant]

REACTIONS (2)
  - Sepsis [None]
  - Nausea [None]
